FAERS Safety Report 20523936 (Version 4)
Quarter: 2022Q3

REPORT INFORMATION
  Report Type: Report from Study
  Country: US (occurrence: None)
  Receive Date: 20220228
  Receipt Date: 20220810
  Transmission Date: 20221026
  Serious: Yes (Hospitalization, Other)
  Sender: FDA-Public Use
  Company Number: US-ROCHE-2898802

PATIENT
  Age: 68 Year
  Sex: Female

DRUGS (29)
  1. FARICIMAB [Suspect]
     Active Substance: FARICIMAB
     Indication: Diabetic retinal oedema
     Dosage: START DATE OF MOST RECENT DOSE OF STUDY DRUG PRIOR TO AE AND SAE:  06/AUG/2021 AT 01:57 PM
     Route: 050
     Dates: start: 20210315
  2. AFLIBERCEPT [Suspect]
     Active Substance: AFLIBERCEPT
     Indication: Diabetic retinal oedema
     Dosage: ON 22/APR/2021 AT 2:01 PM, SHE RECEIVED THE MOST RECENT DOSE OF AFLIBERCEPT (2 MG) PRIOR TO AE AND S
     Route: 050
     Dates: start: 20210422
  3. ASPIRIN [Concomitant]
     Active Substance: ASPIRIN
     Route: 048
     Dates: start: 2009
  4. INVOKANA [Concomitant]
     Active Substance: CANAGLIFLOZIN
     Route: 048
     Dates: start: 2018
  5. VITAMIN D3 [Concomitant]
     Active Substance: CHOLECALCIFEROL
  6. INSULIN LISPRO [Concomitant]
     Active Substance: INSULIN LISPRO
     Route: 058
     Dates: start: 2017
  7. COZAAR [Concomitant]
     Active Substance: LOSARTAN POTASSIUM
     Route: 048
     Dates: start: 2018
  8. GLUCOPHAGE XR [Concomitant]
     Active Substance: METFORMIN HYDROCHLORIDE
     Route: 048
     Dates: start: 1983
  9. METOPROLOL [Concomitant]
     Active Substance: METOPROLOL
     Route: 048
     Dates: start: 2018
  10. LOSARTAN [Concomitant]
     Active Substance: LOSARTAN
     Route: 048
     Dates: start: 20191129
  11. TRAZODONE [Concomitant]
     Active Substance: TRAZODONE HYDROCHLORIDE
     Route: 048
     Dates: start: 20191129
  12. AMLODIPINE [Concomitant]
     Active Substance: AMLODIPINE BESYLATE
     Route: 048
     Dates: start: 20191129
  13. ATORVASTATIN [Concomitant]
     Active Substance: ATORVASTATIN
     Route: 048
     Dates: start: 20191125
  14. KEFLEX [Concomitant]
     Active Substance: CEPHALEXIN
     Indication: Urinary tract infection
     Route: 048
     Dates: start: 20210923, end: 20210929
  15. FUROSEMIDE [Concomitant]
     Active Substance: FUROSEMIDE
     Indication: Hypertension
     Route: 048
     Dates: start: 20210921
  16. AMOXICILLIN [Concomitant]
     Active Substance: AMOXICILLIN
     Indication: Upper respiratory tract infection
     Route: 048
     Dates: start: 20220125, end: 20220131
  17. MUCINEX [Concomitant]
     Active Substance: GUAIFENESIN
     Indication: Bronchitis
     Route: 048
     Dates: start: 20220213
  18. MUCINEX [Concomitant]
     Active Substance: GUAIFENESIN
     Indication: Rhinitis allergic
  19. CETIRIZINE [Concomitant]
     Active Substance: CETIRIZINE HYDROCHLORIDE
     Indication: Bronchitis
     Route: 048
     Dates: start: 20220213
  20. CETIRIZINE [Concomitant]
     Active Substance: CETIRIZINE HYDROCHLORIDE
     Indication: Rhinitis allergic
  21. PREDNISONE [Concomitant]
     Active Substance: PREDNISONE
     Indication: Bronchitis
     Dates: start: 20220213, end: 20220217
  22. ALBUTEROL [Concomitant]
     Active Substance: ALBUTEROL
     Indication: Bronchitis
     Dosage: 90 MCG
     Route: 055
     Dates: start: 20220213, end: 20220301
  23. OCEAN SALINE NASAL SPRAY [Concomitant]
     Active Substance: SODIUM CHLORIDE
     Indication: Bronchitis
     Route: 045
     Dates: start: 20220213, end: 20220301
  24. FLONASE [Concomitant]
     Active Substance: FLUTICASONE PROPIONATE
     Indication: Rhinitis allergic
     Dosage: 50 MCG
     Route: 055
     Dates: start: 20220313
  25. SODIUM CHLORIDE [Concomitant]
     Active Substance: SODIUM CHLORIDE
     Indication: Rhinitis allergic
     Route: 045
     Dates: start: 20220310
  26. BACTRIM [Concomitant]
     Active Substance: SULFAMETHOXAZOLE\TRIMETHOPRIM
     Indication: Ear infection
     Route: 048
     Dates: start: 20220218
  27. AUGMENTIN [Concomitant]
     Active Substance: AMOXICILLIN\CLAVULANATE POTASSIUM
     Indication: Upper respiratory tract infection
     Route: 048
     Dates: start: 20220125, end: 20220131
  28. DEXAMETHASONE [Concomitant]
     Active Substance: DEXAMETHASONE
     Indication: Bronchitis
     Route: 048
     Dates: start: 20220213, end: 20220217
  29. EYLEA [Concomitant]
     Active Substance: AFLIBERCEPT
     Indication: Diabetic retinal oedema
     Route: 050
     Dates: start: 20220803, end: 20220803

REACTIONS (3)
  - Iridocyclitis [Recovered/Resolved]
  - Intraocular pressure increased [Recovered/Resolved]
  - Migraine [Recovering/Resolving]

NARRATIVE: CASE EVENT DATE: 20210806
